FAERS Safety Report 12492676 (Version 2)
Quarter: 2016Q3

REPORT INFORMATION
  Report Type: Spontaneous
  Country: US (occurrence: US)
  Receive Date: 20160623
  Receipt Date: 20160822
  Transmission Date: 20161109
  Serious: Yes (Hospitalization, Other)
  Sender: FDA-Public Use
  Company Number: US-GLAXOSMITHKLINE-US2016GSK062906

PATIENT
  Age: 74 Year
  Sex: Female
  Weight: 61 kg

DRUGS (14)
  1. KEFLEX [Suspect]
     Active Substance: CEPHALEXIN
     Indication: PRODUCT USED FOR UNKNOWN INDICATION
  2. CORTEF [Suspect]
     Active Substance: HYDROCORTISONE
  3. NITROGLYCERIN. [Suspect]
     Active Substance: NITROGLYCERIN
  4. BETAPACE [Suspect]
     Active Substance: SOTALOL HYDROCHLORIDE
  5. ADVAIR HFA [Suspect]
     Active Substance: FLUTICASONE PROPIONATE\SALMETEROL XINAFOATE
     Indication: PRODUCT USED FOR UNKNOWN INDICATION
     Dosage: 1 PUFF(S), BID
  6. ZANTAC [Suspect]
     Active Substance: RANITIDINE HYDROCHLORIDE
     Indication: PRODUCT USED FOR UNKNOWN INDICATION
     Dosage: 150 MG, BID
     Route: 048
     Dates: start: 201512
  7. XANAX [Suspect]
     Active Substance: ALPRAZOLAM
  8. POTASSIUM CHLORIDE. [Suspect]
     Active Substance: POTASSIUM CHLORIDE
     Indication: PRODUCT USED FOR UNKNOWN INDICATION
  9. TRIAMCINOLONE [Suspect]
     Active Substance: TRIAMCINOLONE
     Indication: PRODUCT USED FOR UNKNOWN INDICATION
  10. LASIX [Suspect]
     Active Substance: FUROSEMIDE
  11. LEVOTHYROXINE. [Suspect]
     Active Substance: LEVOTHYROXINE
  12. VENTOLIN [Suspect]
     Active Substance: ALBUTEROL SULFATE
     Indication: PRODUCT USED FOR UNKNOWN INDICATION
  13. XARELTO [Suspect]
     Active Substance: RIVAROXABAN
  14. BENADRYL [Suspect]
     Active Substance: DIPHENHYDRAMINE HYDROCHLORIDE
     Indication: PRODUCT USED FOR UNKNOWN INDICATION
     Dosage: UNK, U

REACTIONS (20)
  - Oedema [Recovered/Resolved]
  - Vomiting [Unknown]
  - Hypertension [Unknown]
  - Diarrhoea [Recovered/Resolved]
  - Right ventricular failure [Unknown]
  - Dysphagia [Unknown]
  - Fluid overload [Unknown]
  - Laryngeal oedema [Recovered/Resolved]
  - Hepatic enzyme increased [Unknown]
  - Anxiety [Unknown]
  - Face oedema [Recovered/Resolved]
  - Drug hypersensitivity [Recovered/Resolved]
  - Dyspnoea [Unknown]
  - Nausea [Recovered/Resolved]
  - Urticaria [Recovered/Resolved]
  - Rash [Recovered/Resolved]
  - Atrial fibrillation [Recovered/Resolved]
  - Chest pain [Unknown]
  - Pain [Recovered/Resolved]
  - Headache [Unknown]

NARRATIVE: CASE EVENT DATE: 201512
